FAERS Safety Report 6308705-2 (Version None)
Quarter: 2009Q3

REPORT INFORMATION
  Report Type: 
  Country: None (occurrence: None)
  Receive Date: 20090813
  Receipt Date: 20071211
  Transmission Date: 20100115
  Serious: No
  Sender: FDA-Public Use
  Company Number: US-ALLERGAN-0713646US

PATIENT
  Age: 92 Year
  Sex: Female

DRUGS (12)
  1. COMBIGAN [Suspect]
     Indication: GLAUCOMA
     Dosage: 1 GTT, BID
     Route: 047
     Dates: start: 20071119
  2. ERYTHROMYCIN [Concomitant]
     Route: 047
  3. REFRESH LIQUIGEL OPHTHALMIC [Concomitant]
     Indication: DRY EYE
  4. SYSTANE [Concomitant]
     Indication: DRY EYE
  5. TIMOLOL MALEATE [Concomitant]
     Route: 047
  6. THYROID TAB [Concomitant]
  7. MIRTAZAPINE [Concomitant]
     Indication: INSOMNIA
  8. ACTONEL [Concomitant]
     Dosage: UNK, Q WEEK
  9. VITAMIN B-12 [Concomitant]
  10. VITAMINS NOS [Concomitant]
  11. DIOVAN [Concomitant]
     Indication: BLOOD PRESSURE
  12. MIACALCIN [Concomitant]
     Route: 045

REACTIONS (1)
  - ERYTHEMA OF EYELID [None]
